FAERS Safety Report 5740318-3 (Version None)
Quarter: 2008Q2

REPORT INFORMATION
  Report Type: 
  Country: None (occurrence: None)
  Receive Date: 20080516
  Receipt Date: 20080508
  Transmission Date: 20081010
  Serious: Yes (Hospitalization)
  Sender: FDA-Public Use
  Company Number: IE-GENENTECH-259750

PATIENT
  Age: 24 Year
  Sex: Female

DRUGS (1)
  1. XOLAIR [Suspect]
     Indication: ASTHMA
     Dosage: 300 MG, UNK
     Route: 058
     Dates: start: 20080327

REACTIONS (4)
  - ANAPHYLACTIC REACTION [None]
  - ASTHMA [None]
  - OEDEMA MOUTH [None]
  - WHEEZING [None]
